FAERS Safety Report 8398685-0 (Version None)
Quarter: 2012Q2

REPORT INFORMATION
  Report Type: 
  Country: None (occurrence: None)
  Receive Date: 20120531
  Receipt Date: 20120524
  Transmission Date: 20120825
  Serious: Yes (Other)
  Sender: FDA-Public Use
  Company Number: DE-ROCHE-1073372

PATIENT
  Age: 64 Year
  Sex: Female

DRUGS (3)
  1. LUCENTIS [Suspect]
     Route: 050
  2. LUCENTIS [Suspect]
     Route: 050
     Dates: start: 20120522
  3. LUCENTIS [Suspect]
     Indication: AGE-RELATED MACULAR DEGENERATION
     Route: 050
     Dates: start: 20120401

REACTIONS (2)
  - CYSTITIS NONINFECTIVE [None]
  - INAPPROPRIATE SCHEDULE OF DRUG ADMINISTRATION [None]
